FAERS Safety Report 17581322 (Version 1)
Quarter: 2020Q1

REPORT INFORMATION
  Report Type: Spontaneous
  Country: US (occurrence: US)
  Receive Date: 20200322
  Receipt Date: 20200322
  Transmission Date: 20200409
  Serious: No
  Sender: FDA-Public Use
  Company Number: None

PATIENT
  Sex: Female

DRUGS (1)
  1. FORTEO [Suspect]
     Active Substance: TERIPARATIDE
     Indication: SENILE OSTEOPOROSIS
     Dosage: ?          OTHER STRENGTH:250 UG/ML;?
     Route: 058
     Dates: start: 20200225, end: 2020

REACTIONS (8)
  - Pain [None]
  - Nausea [None]
  - Musculoskeletal pain [None]
  - Rash pruritic [None]
  - Pelvic pain [None]
  - Feeling cold [None]
  - Vomiting [None]
  - Chills [None]
